FAERS Safety Report 12966731 (Version 4)
Quarter: 2016Q4

REPORT INFORMATION
  Report Type: Spontaneous
  Country: JP (occurrence: JP)
  Receive Date: 20161123
  Receipt Date: 20161220
  Transmission Date: 20170207
  Serious: Yes (Hospitalization)
  Sender: FDA-Public Use
  Company Number: JP-UCBSA-2016041762

PATIENT
  Age: 8 Decade
  Sex: Male

DRUGS (1)
  1. NEUPRO [Suspect]
     Active Substance: ROTIGOTINE
     Indication: PRODUCT USED FOR UNKNOWN INDICATION
     Dosage: 8 MG, ONCE DAILY (QD), STRENGTH 2.25 MG
     Route: 062

REACTIONS (2)
  - Application site dermatitis [Recovering/Resolving]
  - Drug administered at inappropriate site [Unknown]
